FAERS Safety Report 10057149 (Version 1)
Quarter: 2014Q2

REPORT INFORMATION
  Report Type: Report from Study
  Country: US (occurrence: US)
  Receive Date: 20140403
  Receipt Date: 20140403
  Transmission Date: 20141212
  Serious: Yes (Hospitalization)
  Sender: FDA-Public Use
  Company Number: US-ABBVIE-14P-163-1217040-00

PATIENT
  Sex: Male
  Weight: 113.5 kg

DRUGS (3)
  1. HUMIRA [Suspect]
     Indication: CROHN^S DISEASE
     Dates: start: 2009, end: 2009
  2. SERTRALINE [Concomitant]
     Indication: PRODUCT USED FOR UNKNOWN INDICATION
  3. PREDNISONE [Concomitant]
     Indication: PRODUCT USED FOR UNKNOWN INDICATION

REACTIONS (12)
  - Intestinal obstruction [Recovered/Resolved]
  - Muscle spasms [Recovered/Resolved]
  - Abdominal pain [Recovered/Resolved]
  - Diarrhoea [Recovered/Resolved]
  - Abdominal pain [Recovered/Resolved]
  - Crohn^s disease [Recovered/Resolved]
  - Pharyngitis streptococcal [Unknown]
  - Throat lesion [Unknown]
  - Stomatitis [Unknown]
  - Fatigue [Not Recovered/Not Resolved]
  - Diarrhoea [Not Recovered/Not Resolved]
  - Gastrooesophageal reflux disease [Unknown]
